FAERS Safety Report 20333368 (Version 1)
Quarter: 2022Q1

REPORT INFORMATION
  Report Type: Spontaneous
  Country: FR (occurrence: FR)
  Receive Date: 20220113
  Receipt Date: 20220113
  Transmission Date: 20220423
  Serious: Yes (Hospitalization)
  Sender: FDA-Public Use
  Company Number: None

PATIENT
  Age: 84 Year
  Sex: Male

DRUGS (8)
  1. LEVOTHYROXINE SODIUM [Suspect]
     Active Substance: LEVOTHYROXINE SODIUM
     Indication: Inappropriate schedule of product administration
     Dosage: SCORED TABLETS
     Route: 048
     Dates: start: 20211113, end: 20211113
  2. SILODOSIN [Suspect]
     Active Substance: SILODOSIN
     Indication: Inappropriate schedule of product administration
     Route: 048
     Dates: start: 20211113, end: 20211113
  3. EPLERENONE [Suspect]
     Active Substance: EPLERENONE
     Indication: Inappropriate schedule of product administration
     Dates: start: 20211113, end: 20211113
  4. FUROSEMIDE [Suspect]
     Active Substance: FUROSEMIDE
     Indication: Inappropriate schedule of product administration
     Dates: start: 20211113, end: 20211113
  5. DAPAGLIFLOZIN [Suspect]
     Active Substance: DAPAGLIFLOZIN
     Indication: Inappropriate schedule of product administration
     Dates: start: 20211113, end: 20211113
  6. POTASSIUM CHLORIDE [Suspect]
     Active Substance: POTASSIUM CHLORIDE
     Indication: Inappropriate schedule of product administration
     Dates: start: 20211113, end: 20211113
  7. ELIQUIS [Suspect]
     Active Substance: APIXABAN
     Indication: Inappropriate schedule of product administration
     Dates: start: 20211113, end: 20211113
  8. DIGOXIN [Suspect]
     Active Substance: DIGOXIN
     Indication: Inappropriate schedule of product administration
     Dates: start: 20211113, end: 20211113

REACTIONS (2)
  - Malaise [Recovered/Resolved]
  - Inappropriate schedule of product administration [Recovered/Resolved]

NARRATIVE: CASE EVENT DATE: 20211113
